FAERS Safety Report 8458041-3 (Version None)
Quarter: 2012Q2

REPORT INFORMATION
  Report Type: 
  Country: None (occurrence: None)
  Receive Date: 20120622
  Receipt Date: 20120611
  Transmission Date: 20120825
  Serious: Yes (Disabling, Other)
  Sender: FDA-Public Use
  Company Number: US-SANOFI-AVENTIS-2012SA041723

PATIENT
  Age: 52 Year
  Sex: Male

DRUGS (4)
  1. HUMALOG [Suspect]
     Route: 065
  2. INSULIN ASPART [Suspect]
     Route: 065
  3. APIDRA [Suspect]
     Route: 058
  4. LANTUS [Suspect]
     Route: 058
     Dates: start: 20050101

REACTIONS (5)
  - UNDERDOSE [None]
  - SKIN ULCER [None]
  - KETOACIDOSIS [None]
  - AMPUTATION [None]
  - BLOOD GLUCOSE INCREASED [None]
